FAERS Safety Report 21639256 (Version 1)
Quarter: 2022Q4

REPORT INFORMATION
  Report Type: Spontaneous
  Country: US (occurrence: None)
  Receive Date: 20221124
  Receipt Date: 20221124
  Transmission Date: 20230113
  Serious: No
  Sender: FDA-Public Use
  Company Number: 2022A364168

PATIENT
  Sex: Male
  Weight: 70.3 kg

DRUGS (1)
  1. CALQUENCE [Suspect]
     Active Substance: ACALABRUTINIB
     Indication: Chronic lymphocytic leukaemia
     Route: 048
     Dates: start: 20221018

REACTIONS (3)
  - White blood cell count increased [Recovering/Resolving]
  - Product prescribing error [Unknown]
  - Product use issue [Unknown]
